APPROVED DRUG PRODUCT: ESOMEPRAZOLE MAGNESIUM
Active Ingredient: ESOMEPRAZOLE MAGNESIUM
Strength: EQ 20MG BASE
Dosage Form/Route: CAPSULE, DELAYED RELEASE;ORAL
Application: A212376 | Product #001
Applicant: PHARMOBEDIENT CONSULTING LLC
Approved: Oct 16, 2019 | RLD: No | RS: No | Type: DISCN